FAERS Safety Report 7990455-8 (Version None)
Quarter: 2011Q4

REPORT INFORMATION
  Report Type: 
  Country: None (occurrence: None)
  Receive Date: 20111219
  Receipt Date: 20110426
  Transmission Date: 20120403
  Serious: No
  Sender: FDA-Public Use
  Company Number: US-ASTRAZENECA-2011SE23893

PATIENT
  Sex: Male

DRUGS (3)
  1. ACETYLSALICYLIC ACID SRT [Suspect]
     Route: 048
     Dates: start: 20110127
  2. CRESTOR [Suspect]
     Route: 048
     Dates: start: 20110127
  3. CLOPIDOGREL BISULFATE [Suspect]
     Route: 048
     Dates: start: 20110127

REACTIONS (1)
  - CONTUSION [None]
